FAERS Safety Report 4855728-6 (Version None)
Quarter: 2005Q4

REPORT INFORMATION
  Report Type: 
  Country: None (occurrence: None)
  Receive Date: 20051216
  Receipt Date: 20051102
  Transmission Date: 20060501
  Serious: Yes (Hospitalization)
  Sender: FDA-Public Use
  Company Number: CH-ROCHE-423522

PATIENT
  Age: 52 Year
  Sex: Female

DRUGS (1)
  1. XELODA [Suspect]
     Dosage: INDICATION REPORTED AS RECTAL CARCINOMA T3N1M0
     Route: 048
     Dates: start: 20050911, end: 20050925

REACTIONS (5)
  - COLITIS [None]
  - CYTOMEGALOVIRUS INFECTION [None]
  - ENCEPHALITIS [None]
  - ILEUS PARALYTIC [None]
  - INTRACRANIAL VENOUS SINUS THROMBOSIS [None]
